FAERS Safety Report 7723550-9 (Version None)
Quarter: 2011Q3

REPORT INFORMATION
  Report Type: 
  Country: None (occurrence: None)
  Receive Date: 20110826
  Receipt Date: 20110816
  Transmission Date: 20111222
  Serious: Yes (Other)
  Sender: FDA-Public Use
  Company Number: US-2011-10554

PATIENT
  Sex: Female

DRUGS (2)
  1. CYCLOPHOSPHAMIDE [Concomitant]
  2. BUSULFEX [Suspect]
     Indication: BONE MARROW TRANSPLANT
     Dosage: 12.8 MG/KG, DAILY DOSE

REACTIONS (8)
  - AMENORRHOEA [None]
  - RASH [None]
  - MATERNAL EXPOSURE DURING PREGNANCY [None]
  - BONE MARROW TRANSPLANT [None]
  - PREMATURE MENOPAUSE [None]
  - CHRONIC GRAFT VERSUS HOST DISEASE [None]
  - KERATITIS [None]
  - ACUTE GRAFT VERSUS HOST DISEASE [None]
